FAERS Safety Report 8913364 (Version 4)
Quarter: 2014Q2

REPORT INFORMATION
  Report Type: Spontaneous
  Country: IT (occurrence: IT)
  Receive Date: 20121116
  Receipt Date: 20131018
  Transmission Date: 20141212
  Serious: Yes (Hospitalization)
  Sender: FDA-Public Use
  Company Number: IT-PFIZER INC-2012283508

PATIENT
  Age: 8 Month
  Sex: Male

DRUGS (7)
  1. ARACYTIN [Suspect]
     Dosage: 2000 MG, 1X/DAY
     Route: 042
     Dates: start: 20121023, end: 20121024
  2. CISPLATINO SANDOZ [Suspect]
     Indication: LYMPHOMA
     Dosage: 100 MG, TOTAL
     Route: 042
     Dates: start: 20121022, end: 20121022
  3. SOLDESAM [Concomitant]
  4. PEPTAZOL [Concomitant]
  5. SPIRIVA [Concomitant]
  6. ASCRIPTIN [Concomitant]
  7. ZYLORIC [Concomitant]

REACTIONS (5)
  - Renal tubular necrosis [Not Recovered/Not Resolved]
  - Renal failure acute [Not Recovered/Not Resolved]
  - Febrile neutropenia [Not Recovered/Not Resolved]
  - Thrombocytopenia [Not Recovered/Not Resolved]
  - Sepsis [Not Recovered/Not Resolved]
